FAERS Safety Report 16791929 (Version 2)
Quarter: 2019Q3

REPORT INFORMATION
  Report Type: Report from Study
  Country: US (occurrence: US)
  Receive Date: 20190910
  Receipt Date: 20190926
  Transmission Date: 20191005
  Serious: Yes (Hospitalization)
  Sender: FDA-Public Use
  Company Number: US-PFIZER INC-2019382764

PATIENT
  Age: 21 Year
  Sex: Male
  Weight: 73.8 kg

DRUGS (10)
  1. METHOTREXATE SODIUM. [Suspect]
     Active Substance: METHOTREXATE SODIUM
     Indication: B-CELL TYPE ACUTE LEUKAEMIA
     Dosage: 9100 MG, UNK
     Route: 042
     Dates: start: 20190802
  2. VINCRISTINE SULFATE. [Suspect]
     Active Substance: VINCRISTINE SULFATE
     Indication: B-CELL TYPE ACUTE LEUKAEMIA
     Dosage: 2MG IND DAYS 1,8, 15,22; CONSOL DAYS 15,22, 43, 50, INT. MAINT D1.
     Route: 042
     Dates: start: 20190409
  3. INCB018424 [Suspect]
     Active Substance: RUXOLITINIB
     Indication: B-CELL TYPE ACUTE LEUKAEMIA
     Dosage: 50 MG/M2=90 MG TWICE DAILY
     Route: 048
     Dates: start: 20190524
  4. CYCLOPHOSPHAMIDE. [Suspect]
     Active Substance: CYCLOPHOSPHAMIDE
     Indication: B-CELL TYPE ACUTE LEUKAEMIA
     Dosage: 1000MG/M2 CONSOL D1 ,29
     Route: 042
     Dates: start: 20190524
  5. MERCAPTOPURINE. [Suspect]
     Active Substance: MERCAPTOPURINE
     Indication: B-CELL TYPE ACUTE LEUKAEMIA
     Dosage: 60MG/M2, DAYS 1-14, 29-42
     Route: 048
     Dates: start: 20190524
  6. PEGASPARGASE [Suspect]
     Active Substance: PEGASPARGASE
     Indication: B-CELL TYPE ACUTE LEUKAEMIA
     Dosage: UNKNOWN DOSE, INDUCTION X1, CONS DAY 15, 43
     Route: 042
     Dates: start: 20190414
  7. CYTARABINE. [Suspect]
     Active Substance: CYTARABINE
     Indication: B-CELL TYPE ACUTE LEUKAEMIA
     Dosage: 75 MG/M2, CONSOL D1-4, 8-11 , 29-32, 36-39
     Route: 042
     Dates: start: 20190524
  8. METHOTREXATE SODIUM. [Suspect]
     Active Substance: METHOTREXATE SODIUM
     Indication: B-CELL TYPE ACUTE LEUKAEMIA
     Dosage: 15 MG, INDUCTION D1, D29, CONSOL D1,8,15,22, INT MAINT. D1
     Route: 037
     Dates: start: 20190507
  9. DAUNORUBICIN [Suspect]
     Active Substance: DAUNORUBICIN
     Indication: B-CELL TYPE ACUTE LEUKAEMIA
     Dosage: UNSPECIFIED DOSE, INDUCTION DAY 1, 8, 15, 22
     Route: 042
     Dates: start: 20190410
  10. PREDNISONE. [Suspect]
     Active Substance: PREDNISONE
     Indication: B-CELL TYPE ACUTE LEUKAEMIA
     Dosage: UNKNOWN DOSE, INDUCTION DAYS 1-28
     Route: 048
     Dates: start: 20190410

REACTIONS (2)
  - Mucosal inflammation [Recovered/Resolved]
  - Catheter site infection [Recovering/Resolving]

NARRATIVE: CASE EVENT DATE: 20190811
